FAERS Safety Report 12485044 (Version 1)
Quarter: 2016Q2

REPORT INFORMATION
  Report Type: Report from Study
  Country: FR (occurrence: FR)
  Receive Date: 20160621
  Receipt Date: 20160621
  Transmission Date: 20160815
  Serious: Yes (Other)
  Sender: FDA-Public Use
  Company Number: FR-GLAXOSMITHKLINE-FR2016GSK087971

PATIENT
  Age: 31 Year
  Sex: Female

DRUGS (4)
  1. NORVIR [Suspect]
     Active Substance: RITONAVIR
     Indication: PRODUCT USED FOR UNKNOWN INDICATION
     Route: 065
  2. COMPLERA [Suspect]
     Active Substance: EMTRICITABINE\RILPIVIRINE HYDROCHLORIDE\TENOFOVIR DISOPROXIL FUMARATE
     Indication: PRODUCT USED FOR UNKNOWN INDICATION
     Dosage: 1 TAB/CAPS ORALLY DAILY
     Route: 048
     Dates: start: 20150413, end: 20150914
  3. REYATAZ [Suspect]
     Active Substance: ATAZANAVIR SULFATE
     Indication: PRODUCT USED FOR UNKNOWN INDICATION
     Route: 065
  4. ABACAVIR SULFATE + LAMIVUDINE [Suspect]
     Active Substance: ABACAVIR SULFATE\LAMIVUDINE
     Indication: PRODUCT USED FOR UNKNOWN INDICATION
     Route: 065

REACTIONS (3)
  - Abortion induced [Unknown]
  - Exposure during pregnancy [Unknown]
  - Ectopic pregnancy [Unknown]

NARRATIVE: CASE EVENT DATE: 2015
